FAERS Safety Report 4541982-7 (Version None)
Quarter: 2004Q4

REPORT INFORMATION
  Report Type: 
  Country: None (occurrence: None)
  Receive Date: 20041230
  Receipt Date: 20041222
  Transmission Date: 20050328
  Serious: Yes (Death)
  Sender: FDA-Public Use
  Company Number: US-JNJFOC-20040903705

PATIENT
  Sex: Male

DRUGS (6)
  1. REMINYL [Suspect]
     Route: 049
  2. PREVACID [Concomitant]
  3. ZOLOFT [Concomitant]
     Indication: DEPRESSION
  4. SEROQUEL [Concomitant]
  5. CARDIZEM [Concomitant]
  6. LORAZEPAM [Concomitant]

REACTIONS (3)
  - CARDIAC FAILURE CONGESTIVE [None]
  - FAILURE TO THRIVE [None]
  - SEPSIS [None]
